FAERS Safety Report 20824786 (Version 3)
Quarter: 2022Q3

REPORT INFORMATION
  Report Type: Report from Study
  Country: US (occurrence: US)
  Receive Date: 20220513
  Receipt Date: 20220716
  Transmission Date: 20221026
  Serious: Yes (Hospitalization)
  Sender: FDA-Public Use
  Company Number: US-JNJFOC-20220240742

PATIENT
  Age: 27 Year
  Sex: Female
  Weight: 92.7 kg

DRUGS (8)
  1. SELEXIPAG [Suspect]
     Active Substance: SELEXIPAG
     Indication: Pulmonary hypertension
     Route: 048
  2. SELEXIPAG [Suspect]
     Active Substance: SELEXIPAG
     Indication: Pulmonary arterial hypertension
     Route: 048
     Dates: start: 202202, end: 202202
  3. SELEXIPAG [Suspect]
     Active Substance: SELEXIPAG
     Indication: Systemic lupus erythematosus
     Route: 048
  4. SELEXIPAG [Suspect]
     Active Substance: SELEXIPAG
     Dosage: UPTRAVI 800 MCG ORALLY 2 TIMES DAILY
     Route: 048
  5. SELEXIPAG [Suspect]
     Active Substance: SELEXIPAG
     Route: 048
  6. SELEXIPAG [Suspect]
     Active Substance: SELEXIPAG
     Route: 048
  7. LETAIRIS [Concomitant]
     Active Substance: AMBRISENTAN
  8. ADCIRCA [Concomitant]
     Active Substance: TADALAFIL

REACTIONS (16)
  - Pulmonary arterial hypertension [Unknown]
  - Sepsis [Unknown]
  - Fluid retention [Unknown]
  - Cardiac disorder [Unknown]
  - COVID-19 [Not Recovered/Not Resolved]
  - Vaginal infection [Unknown]
  - Presyncope [Recovered/Resolved]
  - Headache [Not Recovered/Not Resolved]
  - Abdominal pain [Unknown]
  - Diarrhoea [Unknown]
  - Abdominal pain upper [Unknown]
  - Nausea [Unknown]
  - Pain in jaw [Unknown]
  - Abdominal discomfort [Unknown]
  - Dizziness [Not Recovered/Not Resolved]
  - Vomiting [Unknown]

NARRATIVE: CASE EVENT DATE: 20220301
